FAERS Safety Report 24245422 (Version 1)
Quarter: 2024Q3

REPORT INFORMATION
  Report Type: Report from Study
  Country: US (occurrence: None)
  Receive Date: 20240824
  Receipt Date: 20240824
  Transmission Date: 20241016
  Serious: Yes (Other)
  Sender: ASTRAZENECA
  Company Number: 2024A188799

PATIENT
  Sex: Female
  Weight: 56.4 kg

DRUGS (2)
  1. LYNPARZA [Suspect]
     Active Substance: OLAPARIB
     Indication: Genital neoplasm malignant female
     Route: 048
     Dates: start: 20220122
  2. LYNPARZA [Suspect]
     Active Substance: OLAPARIB
     Indication: Genital neoplasm malignant female
     Route: 048
     Dates: start: 20220122

REACTIONS (4)
  - Oesophageal haemorrhage [Unknown]
  - Hypertension [Unknown]
  - Diarrhoea [Unknown]
  - Mouth haemorrhage [Unknown]
